FAERS Safety Report 20994916 (Version 1)
Quarter: 2022Q2

REPORT INFORMATION
  Report Type: Report from Study
  Country: US (occurrence: US)
  Receive Date: 20220622
  Receipt Date: 20220622
  Transmission Date: 20220721
  Serious: No
  Sender: FDA-Public Use
  Company Number: US-INCYTE CORPORATION-2022IN004778

PATIENT

DRUGS (1)
  1. JAKAFI [Suspect]
     Active Substance: RUXOLITINIB
     Indication: Myelodysplastic syndrome
     Dosage: 5 MILLIGRAM
     Route: 048

REACTIONS (5)
  - Platelet count abnormal [Unknown]
  - Red blood cell count decreased [Unknown]
  - Fatigue [Unknown]
  - Hypersomnia [Unknown]
  - Off label use [Unknown]
